FAERS Safety Report 24080727 (Version 2)
Quarter: 2024Q3

REPORT INFORMATION
  Report Type: Spontaneous
  Country: US (occurrence: US)
  Receive Date: 20240711
  Receipt Date: 20240809
  Transmission Date: 20241017
  Serious: Yes (Life-Threatening, Other)
  Sender: TEVA
  Company Number: US-TEVA-VS-3218677

PATIENT
  Age: 45 Year
  Sex: Male

DRUGS (1)
  1. AMIODARONE [Suspect]
     Active Substance: AMIODARONE
     Indication: Ventricular tachyarrhythmia
     Dosage: RECEIVED 2 DOSES FOR A TOTAL OF 2.6G
     Route: 048

REACTIONS (1)
  - Pulmonary toxicity [Recovering/Resolving]
